FAERS Safety Report 25120586 (Version 1)
Quarter: 2025Q1

REPORT INFORMATION
  Report Type: Spontaneous
  Country: CN (occurrence: CN)
  Receive Date: 20250325
  Receipt Date: 20250325
  Transmission Date: 20250408
  Serious: Yes (Hospitalization, Other)
  Sender: MERCK SHARP & DOHME LLC
  Company Number: CN-BAYER-2025A034945

PATIENT
  Age: 81 Year
  Sex: Female
  Weight: 44 kg

DRUGS (3)
  1. VERQUVO [Suspect]
     Active Substance: VERICIGUAT
     Indication: Cardiac failure
     Dosage: 5 MG, QD
     Route: 048
     Dates: start: 20250201, end: 20250307
  2. SACUBITRIL\VALSARTAN [Suspect]
     Active Substance: SACUBITRIL\VALSARTAN
     Indication: Cardiac failure
     Dosage: 0.5 DF, QD
     Route: 048
     Dates: start: 20250201, end: 20250307
  3. HERBALS [Suspect]
     Active Substance: HERBALS
     Indication: Postoperative care
     Dosage: 1 DF, BID
     Route: 048
     Dates: start: 20250201, end: 20250301

REACTIONS (5)
  - Upper gastrointestinal haemorrhage [Recovering/Resolving]
  - Product prescribing issue [Unknown]
  - Haemoglobin decreased [Not Recovered/Not Resolved]
  - Incorrect dose administered [Unknown]
  - Diarrhoea haemorrhagic [Recovering/Resolving]

NARRATIVE: CASE EVENT DATE: 20250201
